FAERS Safety Report 18221217 (Version 1)
Quarter: 2020Q3

REPORT INFORMATION
  Report Type: Other
  Country: GB (occurrence: GB)
  Receive Date: 20200902
  Receipt Date: 20200902
  Transmission Date: 20201103
  Serious: Yes (Other)
  Sender: FDA-Public Use
  Company Number: GB-TEVA-416489ISR

PATIENT
  Sex: Female

DRUGS (2)
  1. METFORMIN [Suspect]
     Active Substance: METFORMIN HYDROCHLORIDE
     Indication: PRODUCT USED FOR UNKNOWN INDICATION
     Dosage: 500 MILLIGRAM, UNK
     Route: 065
     Dates: start: 201305
  2. GLICLAZIDE [Suspect]
     Active Substance: GLICLAZIDE
     Indication: PRODUCT USED FOR UNKNOWN INDICATION
     Dosage: 80 MILLIGRAM, UNK
     Route: 065
     Dates: start: 201305

REACTIONS (4)
  - Paraesthesia [Unknown]
  - Deafness unilateral [Unknown]
  - Arthralgia [Unknown]
  - Sleep disorder [Unknown]

NARRATIVE: CASE EVENT DATE: 201305
